FAERS Safety Report 13733067 (Version 6)
Quarter: 2017Q4

REPORT INFORMATION
  Report Type: Spontaneous
  Country: US (occurrence: US)
  Receive Date: 20170707
  Receipt Date: 20171110
  Transmission Date: 20180320
  Serious: Yes (Death, Hospitalization, Other)
  Sender: FDA-Public Use
  Company Number: US-GLAXOSMITHKLINE-US2017GSK105310

PATIENT
  Age: 20 Year
  Sex: Male
  Weight: 118 kg

DRUGS (7)
  1. NUCALA [Suspect]
     Active Substance: MEPOLIZUMAB
     Indication: ASTHMA
     Dosage: 100 MG, CYC
     Route: 058
     Dates: start: 201607, end: 20170627
  2. PROAIR HFA [Concomitant]
     Active Substance: ALBUTEROL SULFATE
  3. PREVACID [Concomitant]
     Active Substance: LANSOPRAZOLE
  4. SINGULAIR [Concomitant]
     Active Substance: MONTELUKAST SODIUM
     Dosage: 10 MG, UNK
  5. DULERA [Concomitant]
     Active Substance: FORMOTEROL FUMARATE DIHYDRATE\MOMETASONE FUROATE
  6. ALLEGRA [Concomitant]
     Active Substance: FEXOFENADINE HYDROCHLORIDE
  7. PREDNISONE. [Concomitant]
     Active Substance: PREDNISONE
     Dosage: 5 MG, UNK

REACTIONS (26)
  - Unresponsive to stimuli [Unknown]
  - Dry skin [Unknown]
  - Mucosal discolouration [Unknown]
  - Eosinophilia [Unknown]
  - Dyspnoea [Unknown]
  - Pulse absent [Unknown]
  - Lung hyperinflation [Not Recovered/Not Resolved]
  - Livedo reticularis [Unknown]
  - Oropharyngeal discomfort [Unknown]
  - Throat tightness [Unknown]
  - Loss of consciousness [Unknown]
  - Peripheral coldness [Unknown]
  - Adverse food reaction [Unknown]
  - Bronchial secretion retention [Not Recovered/Not Resolved]
  - Respiratory arrest [Unknown]
  - Vomiting [Unknown]
  - Use of accessory respiratory muscles [Unknown]
  - Cardiac arrest [Unknown]
  - Cyanosis [Unknown]
  - Ill-defined disorder [Unknown]
  - Asthma [Fatal]
  - Apnoeic attack [Unknown]
  - Cyanosis central [Unknown]
  - Respiratory distress [Unknown]
  - Skin disorder [Unknown]
  - Anaphylactic reaction [Unknown]

NARRATIVE: CASE EVENT DATE: 20170630
